FAERS Safety Report 4726631-7 (Version None)
Quarter: 2005Q3

REPORT INFORMATION
  Report Type: 
  Country: None (occurrence: None)
  Receive Date: 20050725
  Receipt Date: 20050502
  Transmission Date: 20060218
  Serious: No
  Sender: FDA-Public Use
  Company Number: US_0505117006

PATIENT
  Sex: Male

DRUGS (3)
  1. STRATTERA [Suspect]
     Dates: end: 20040401
  2. CELEXA [Concomitant]
  3. ADDERALL XR 15 [Concomitant]

REACTIONS (1)
  - GASTROOESOPHAGEAL REFLUX DISEASE [None]
